FAERS Safety Report 16407631 (Version 1)
Quarter: 2019Q2

REPORT INFORMATION
  Report Type: Spontaneous
  Country: AR (occurrence: AR)
  Receive Date: 20190609
  Receipt Date: 20190609
  Transmission Date: 20190711
  Serious: Yes (Death, Other)
  Sender: FDA-Public Use
  Company Number: AR-AMGEN-ARGSP2019090707

PATIENT
  Age: 72 Year
  Sex: Male

DRUGS (1)
  1. ENBREL [Suspect]
     Active Substance: ETANERCEPT
     Indication: RHEUMATOID ARTHRITIS
     Dosage: 50 MG, WEEKLY
     Route: 065
     Dates: start: 20180326

REACTIONS (4)
  - Rheumatoid arthritis [Fatal]
  - Spinal deformity [Fatal]
  - Deformity thorax [Fatal]
  - Pneumonia [Fatal]
